FAERS Safety Report 4578353-3 (Version None)
Quarter: 2005Q1

REPORT INFORMATION
  Report Type: 
  Country: None (occurrence: None)
  Receive Date: 20050202
  Receipt Date: 20050202
  Transmission Date: 20050727
  Serious: Yes (Hospitalization)
  Sender: FDA-Public Use
  Company Number: None

PATIENT
  Age: 55 Year
  Sex: Female
  Weight: 48 kg

DRUGS (1)
  1. COMBIVIR [Suspect]
     Indication: HIV INFECTION
     Dosage: ONE PO BID
     Route: 048

REACTIONS (5)
  - ANAEMIA [None]
  - CHILLS [None]
  - FLANK PAIN [None]
  - HAEMATURIA [None]
  - PYREXIA [None]
